FAERS Safety Report 7291731-7 (Version None)
Quarter: 2011Q1

REPORT INFORMATION
  Report Type: 
  Country: None (occurrence: None)
  Receive Date: 20110209
  Receipt Date: 20110209
  Transmission Date: 20110831
  Serious: Yes (Hospitalization)
  Sender: FDA-Public Use
  Company Number: None

PATIENT
  Sex: Male
  Weight: 113.3539 kg

DRUGS (18)
  1. BUTALBITAL ACETAMINOPHEN AND CAFFEINE [Concomitant]
  2. MIRALAX [Concomitant]
  3. CISPLATIN [Suspect]
     Indication: TRACHEAL CANCER
     Dosage: 100MG/M2 -236MG- EVERY 21 DAYS IV DRIP
     Route: 041
     Dates: start: 20101130, end: 20101221
  4. TARCEVA [Suspect]
     Dosage: 150 MG EVERY DAY PO
     Route: 048
     Dates: start: 20101122, end: 20101210
  5. HYDROCODONE BITARTRATE [Concomitant]
  6. AMLODIPINE [Concomitant]
  7. SENNA [Concomitant]
  8. CLINDAMYCIN GEL [Concomitant]
  9. MORPHINE ELIXIR [Concomitant]
  10. HYDROCHLOROTHIAZIDE/HYDRALAZINE [Concomitant]
  11. ZOFRAN [Concomitant]
  12. MAGIC MOUTHWASH [Concomitant]
  13. FLUCANOZOLE [Concomitant]
  14. ATIVAN [Concomitant]
  15. ZOCOR [Concomitant]
  16. LISINOPRIL [Concomitant]
  17. METFORMIN HCL [Concomitant]
  18. AMBIEN [Concomitant]

REACTIONS (5)
  - RASH [None]
  - WEIGHT DECREASED [None]
  - MALNUTRITION [None]
  - MUCOSAL INFLAMMATION [None]
  - REFUSAL OF TREATMENT BY PATIENT [None]
